FAERS Safety Report 7381751-6 (Version None)
Quarter: 2011Q1

REPORT INFORMATION
  Report Type: 
  Country: None (occurrence: None)
  Receive Date: 20110329
  Receipt Date: 20110324
  Transmission Date: 20110831
  Serious: No
  Sender: FDA-Public Use
  Company Number: US-TEVA-269956USA

PATIENT
  Sex: Female
  Weight: 97.61 kg

DRUGS (1)
  1. PLAN B ONE-STEP [Suspect]
     Indication: POST COITAL CONTRACEPTION
     Route: 048
     Dates: start: 20110227, end: 20110227

REACTIONS (6)
  - VULVOVAGINAL DISCOMFORT [None]
  - BREAST TENDERNESS [None]
  - BACK PAIN [None]
  - FATIGUE [None]
  - DIZZINESS [None]
  - NAUSEA [None]
